FAERS Safety Report 6994281-8 (Version None)
Quarter: 2010Q3

REPORT INFORMATION
  Report Type: 
  Country: None (occurrence: None)
  Receive Date: 20100917
  Receipt Date: 20100907
  Transmission Date: 20110219
  Serious: Yes (Hospitalization)
  Sender: FDA-Public Use
  Company Number: FR-ELI_LILLY_AND_COMPANY-FR201009001440

PATIENT
  Age: 44 Year
  Sex: Male

DRUGS (6)
  1. ZYPADHERA [Suspect]
     Indication: SCHIZOPHRENIA
     Dosage: 405 MG, EVERY 4 WEEKS
     Route: 030
     Dates: start: 20100819
  2. ZYPREXA [Suspect]
     Indication: SCHIZOPHRENIA
     Dosage: 20 MG, DAILY (1/D)
     Route: 048
     Dates: end: 20100819
  3. GLYBURIDE [Concomitant]
     Indication: DIABETES MELLITUS
     Dosage: UNK, UNKNOWN
     Route: 048
  4. GLUCOPHAGE [Concomitant]
     Indication: DIABETES MELLITUS
     Dosage: UNK, UNKNOWN
     Route: 048
  5. TENORMIN [Concomitant]
     Dosage: UNK, UNKNOWN
     Route: 065
  6. XANAX [Concomitant]
     Indication: SCHIZOPHRENIA
     Dosage: UNK, UNKNOWN
     Route: 048

REACTIONS (4)
  - ALTERED STATE OF CONSCIOUSNESS [None]
  - SUICIDE ATTEMPT [None]
  - UNRESPONSIVE TO STIMULI [None]
  - VOMITING [None]
